FAERS Safety Report 9702391 (Version 1)
Quarter: 2013Q4

REPORT INFORMATION
  Report Type: Report from Study
  Country: CA (occurrence: CA)
  Receive Date: 20131121
  Receipt Date: 20131121
  Transmission Date: 20140711
  Serious: Yes (Hospitalization)
  Sender: FDA-Public Use
  Company Number: CA-UCBSA-103623

PATIENT
  Age: 47 Year
  Sex: Male
  Weight: 84 kg

DRUGS (4)
  1. CIMZIA [Suspect]
     Indication: CROHN^S DISEASE
     Route: 058
     Dates: start: 20121120, end: 20121217
  2. CIMZIA [Suspect]
     Indication: CROHN^S DISEASE
     Route: 058
     Dates: start: 20130113
  3. IMMODIUM [Concomitant]
     Indication: PROPHYLAXIS
     Route: 048
  4. CALCIUM-VIT-D [Concomitant]
     Indication: MINERAL SUPPLEMENTATION
     Dosage: 500 -400 MG UI
     Route: 048

REACTIONS (1)
  - Abdominal abscess [Recovered/Resolved]
